FAERS Safety Report 10413870 (Version 1)
Quarter: 2014Q3

REPORT INFORMATION
  Report Type: Spontaneous
  Country: FR (occurrence: None)
  Receive Date: 20140825
  Receipt Date: 20140825
  Transmission Date: 20150326
  Serious: Yes (Hospitalization)
  Sender: FDA-Public Use
  Company Number: AUR-APL-2014-08846

PATIENT
  Age: 45 Year
  Sex: Male

DRUGS (5)
  1. TRAMADOL (TRAMADOL) [Suspect]
     Active Substance: TRAMADOL
     Indication: PRODUCT USED FOR UNKNOWN INDICATION
     Route: 048
     Dates: start: 20140723, end: 20140727
  2. DALACINE (CLINDAMYCIN PHOSPHATE) [Suspect]
     Active Substance: CLINDAMYCIN PHOSPHATE
     Indication: DERMO-HYPODERMITIS
     Dates: start: 20140721
  3. ZYVOXID (LINEZOLID) (LINEZOLID) [Suspect]
     Active Substance: LINEZOLID
     Indication: DERMO-HYPODERMITIS
     Route: 048
     Dates: start: 20140723, end: 20140728
  4. AMOXICILLINE PANPHARMA (AMOXICILLIN SODIUM)POWDER FOR SOLUTION FOR INJECTION [Suspect]
     Active Substance: AMOXICILLIN
     Indication: DERMO-HYPODERMITIS
     Route: 041
     Dates: start: 20140723, end: 20140727
  5. LOVENOX [Suspect]
     Active Substance: ENOXAPARIN SODIUM
     Indication: PRODUCT USED FOR UNKNOWN INDICATION
     Route: 058
     Dates: start: 20140721, end: 20140727

REACTIONS (11)
  - Tachycardia [None]
  - Lymphadenopathy [None]
  - White blood cell count increased [None]
  - Thrombophlebitis superficial [None]
  - Blood fibrinogen increased [None]
  - C-reactive protein increased [None]
  - Blood creatinine increased [None]
  - Blood potassium decreased [None]
  - Neutrophil count increased [None]
  - Pyrexia [None]
  - Dyspnoea exertional [None]

NARRATIVE: CASE EVENT DATE: 20140727
